FAERS Safety Report 15366726 (Version 1)
Quarter: 2018Q3

REPORT INFORMATION
  Report Type: Spontaneous
  Country: US (occurrence: US)
  Receive Date: 20180901
  Receipt Date: 20180901
  Transmission Date: 20181010
  Serious: Yes (Hospitalization, Disabling)
  Sender: FDA-Public Use
  Company Number: None

PATIENT
  Age: 60 Year
  Sex: Female
  Weight: 65.25 kg

DRUGS (12)
  1. MELALEUCA REPLENEX [Concomitant]
  2. CIPROFLOXACIN. [Suspect]
     Active Substance: CIPROFLOXACIN
     Indication: DIVERTICULITIS
     Dosage: ?          QUANTITY:16 TABLET(S);?
     Route: 048
     Dates: start: 20171219, end: 20171222
  3. MELALEUCA VITALITY CALCIUM COMPLETE [Concomitant]
  4. VITAMIN E [Concomitant]
     Active Substance: .ALPHA.-TOCOPHEROL
  5. ZOLOFT [Concomitant]
     Active Substance: SERTRALINE HYDROCHLORIDE
  6. SEROQUEL [Concomitant]
     Active Substance: QUETIAPINE FUMARATE
  7. MELALEUCA CELL WISE [Concomitant]
  8. WELLBUTRIN [Concomitant]
     Active Substance: BUPROPION HYDROCHLORIDE
  9. CLONAZEPAM. [Concomitant]
     Active Substance: CLONAZEPAM
  10. HIGH ABSORPTION MAGNESIUM [Concomitant]
  11. MELALEUCA MULTIVITAMIN + MINERAL [Concomitant]
  12. K?FORCE (WITH VITAMIN D) [Concomitant]

REACTIONS (29)
  - Bedridden [None]
  - Muscular weakness [None]
  - Toxicity to various agents [None]
  - Suicide attempt [None]
  - Arthropathy [None]
  - Fatigue [None]
  - Insomnia [None]
  - Musculoskeletal pain [None]
  - Paraesthesia [None]
  - Neuropathy peripheral [None]
  - Loss of personal independence in daily activities [None]
  - Gait disturbance [None]
  - Feeling abnormal [None]
  - Abnormal loss of weight [None]
  - Wheelchair user [None]
  - Dizziness [None]
  - Neurological symptom [None]
  - Refusal of treatment by patient [None]
  - Tendon disorder [None]
  - Walking aid user [None]
  - Amnesia [None]
  - Asthenia [None]
  - Anxiety [None]
  - Depression [None]
  - Gastrointestinal disorder [None]
  - Failure to thrive [None]
  - Pain in extremity [None]
  - Arthralgia [None]
  - Neck pain [None]

NARRATIVE: CASE EVENT DATE: 20171222
